FAERS Safety Report 10771970 (Version 1)
Quarter: 2015Q1

REPORT INFORMATION
  Report Type: Spontaneous
  Country: DE (occurrence: DE)
  Receive Date: 20150206
  Receipt Date: 20150206
  Transmission Date: 20150721
  Serious: Yes (Other)
  Sender: FDA-Public Use
  Company Number: DE-ELI_LILLY_AND_COMPANY-DE201502000209

PATIENT
  Age: 77 Year
  Sex: Female

DRUGS (2)
  1. HUMALOG MIX50/50 [Suspect]
     Active Substance: INSULIN LISPRO
     Indication: DIABETES MELLITUS
     Dosage: UNK, BID
     Route: 058
  2. HUMINSULIN 30% REGULAR, 70% NPH [Suspect]
     Active Substance: INSULIN HUMAN
     Indication: DIABETES MELLITUS
     Dosage: UNK, EACH EVENING
     Route: 058

REACTIONS (4)
  - Asthenia [Recovered/Resolved]
  - Intervertebral disc protrusion [Unknown]
  - Memory impairment [Recovered/Resolved]
  - Renal cancer [Unknown]
